FAERS Safety Report 8915605 (Version 1)
Quarter: 2012Q4

REPORT INFORMATION
  Report Type: 
  Country: US (occurrence: US)
  Receive Date: 20121119
  Receipt Date: 20121119
  Transmission Date: 20130627
  Serious: No
  Sender: FDA-Public Use
  Company Number: US-FOUGERA-2012FO001230

PATIENT
  Sex: Male

DRUGS (1)
  1. CLOBETASOL PROPIONATE [Suspect]
     Indication: SKIN DISORDER
     Dates: start: 201206

REACTIONS (3)
  - Rash [Unknown]
  - Condition aggravated [Unknown]
  - Off label use [Unknown]
